FAERS Safety Report 9596713 (Version 1)
Quarter: 2013Q4

REPORT INFORMATION
  Report Type: Spontaneous
  Country: AR (occurrence: AR)
  Receive Date: 20131004
  Receipt Date: 20131004
  Transmission Date: 20140711
  Serious: Yes (Other)
  Sender: FDA-Public Use
  Company Number: AR-B.I. PHARMACEUTICALS,INC./RIDGEFIELD-2013-BI-31212RA

PATIENT
  Age: 41 Year
  Sex: Male

DRUGS (5)
  1. PRADAXA [Suspect]
     Indication: THROMBOSIS PROPHYLAXIS
     Dosage: 150 MG
     Dates: start: 201212, end: 201212
  2. UNSPECIFIED ANXIOLYTIC [Concomitant]
     Indication: ANXIETY
     Route: 048
  3. CARVEDILOL [Concomitant]
     Indication: HYPERTENSION
     Route: 048
  4. UNSPECIFIED VENOTONIC [Concomitant]
     Indication: VARICOSE VEIN
     Route: 048
  5. ENALAPRIL [Concomitant]
     Indication: HYPERTENSION
     Route: 058

REACTIONS (1)
  - Deep vein thrombosis [Recovered/Resolved]
